FAERS Safety Report 7600225-8 (Version None)
Quarter: 2011Q3

REPORT INFORMATION
  Report Type: 
  Country: None (occurrence: None)
  Receive Date: 20110711
  Receipt Date: 20110705
  Transmission Date: 20111222
  Serious: Yes (Death, Hospitalization)
  Sender: FDA-Public Use
  Company Number: PHHY2011US50454

PATIENT
  Sex: Male
  Weight: 75 kg

DRUGS (1)
  1. EXJADE [Suspect]
     Indication: SICKLE CELL ANAEMIA
     Dosage: 2000 MG, QD
     Route: 048
     Dates: start: 20060324, end: 20110616

REACTIONS (6)
  - DIABETES MELLITUS [None]
  - CARDIAC FAILURE CONGESTIVE [None]
  - DEATH [None]
  - PANCREATIC INSUFFICIENCY [None]
  - HEPATOTOXICITY [None]
  - IRON OVERLOAD [None]
